FAERS Safety Report 8786871 (Version 2)
Quarter: 2013Q4

REPORT INFORMATION
  Report Type: Spontaneous
  Country: US (occurrence: US)
  Receive Date: 20120914
  Receipt Date: 20131031
  Transmission Date: 20140711
  Serious: Yes (Other)
  Sender: FDA-Public Use
  Company Number: US-009507513-1209USA003697

PATIENT
  Sex: Female

DRUGS (4)
  1. ISENTRESS [Suspect]
     Dosage: 400 MG, BID
     Route: 048
  2. CELSENTRI [Suspect]
     Dosage: 300 MG, QD
  3. PREZISTA [Suspect]
     Dosage: 400 MG, BID
     Route: 048
  4. NORVIR [Suspect]
     Dosage: 100 MG, BID
     Route: 048

REACTIONS (2)
  - Condition aggravated [Unknown]
  - Depression [Unknown]
